FAERS Safety Report 6501926-5 (Version None)
Quarter: 2009Q4

REPORT INFORMATION
  Report Type: 
  Country: None (occurrence: None)
  Receive Date: 20091216
  Receipt Date: 20091214
  Transmission Date: 20100525
  Serious: Yes (Hospitalization, Other)
  Sender: FDA-Public Use
  Company Number: US-ROXANE LABORATORIES, INC.-2009-RO-01254RO

PATIENT
  Age: 55 Year
  Sex: Female

DRUGS (6)
  1. CITALOPRAM HYDROBROMIDE [Suspect]
     Indication: DEPRESSION
  2. BUPROPION HCL [Suspect]
     Indication: DEPRESSION
  3. METHYLENE BLUE [Suspect]
     Indication: SURGERY
     Route: 042
  4. OXYGEN [Concomitant]
     Indication: OXYGEN SUPPLEMENTATION
     Route: 055
  5. BETA BLOCKERS [Concomitant]
  6. LORAZEPAM [Concomitant]

REACTIONS (3)
  - ENCEPHALOPATHY [None]
  - PARATHYROID TUMOUR BENIGN [None]
  - SEROTONIN SYNDROME [None]
